FAERS Safety Report 15412249 (Version 1)
Quarter: 2018Q3

REPORT INFORMATION
  Report Type: Spontaneous
  Country: KR (occurrence: KR)
  Receive Date: 20180921
  Receipt Date: 20180921
  Transmission Date: 20181010
  Serious: No
  Sender: FDA-Public Use
  Company Number: KR-ALKEM LABORATORIES LIMITED-KR-ALKEM-2018-06740

PATIENT
  Age: 58 Year
  Sex: Male

DRUGS (2)
  1. DULOXETINE HYDROCHLORIDE. [Suspect]
     Active Substance: DULOXETINE HYDROCHLORIDE
     Indication: DEPRESSIVE SYMPTOM
     Dosage: 60 MG, QD
     Route: 065
  2. DULOXETINE HYDROCHLORIDE. [Suspect]
     Active Substance: DULOXETINE HYDROCHLORIDE
     Indication: SOMATIC SYMPTOM DISORDER
     Dosage: 30 MG, QD
     Route: 065

REACTIONS (1)
  - Hyponatraemia [Recovered/Resolved]
